FAERS Safety Report 9455222 (Version 1)
Quarter: 2013Q3

REPORT INFORMATION
  Report Type: Spontaneous
  Country: US (occurrence: US)
  Receive Date: 20130813
  Receipt Date: 20130813
  Transmission Date: 20140515
  Serious: Yes (Other)
  Sender: FDA-Public Use
  Company Number: US-GENZYME-CERZ-1003114

PATIENT
  Age: 58 Year
  Sex: Female

DRUGS (1)
  1. CEREZYME [Suspect]
     Indication: GAUCHER^S DISEASE
     Dosage: 3200 U, Q2W
     Route: 042

REACTIONS (10)
  - Hypersensitivity [Unknown]
  - Ear pruritus [Unknown]
  - Dyspepsia [Unknown]
  - Asthenia [Unknown]
  - Swelling face [Unknown]
  - Erythema [Unknown]
  - Retching [Unknown]
  - Dyspnoea [Unknown]
  - Vomiting [Unknown]
  - Nausea [Unknown]
